FAERS Safety Report 7607403-2 (Version None)
Quarter: 2011Q3

REPORT INFORMATION
  Report Type: 
  Country: None (occurrence: None)
  Receive Date: 20110713
  Receipt Date: 20110708
  Transmission Date: 20111222
  Serious: Yes (Death)
  Sender: FDA-Public Use
  Company Number: US-GILEAD-2011-0041057

PATIENT
  Sex: Male
  Weight: 124.6 kg

DRUGS (12)
  1. LETAIRIS [Suspect]
     Indication: PULMONARY HYPERTENSION
     Route: 048
     Dates: start: 20081126
  2. THEOPHYLLINE [Concomitant]
     Indication: ASTHMA
  3. PROZAC [Concomitant]
     Indication: SCHIZOPHRENIA
  4. ALLOPURINOL [Concomitant]
     Indication: GOUT
  5. COUMADIN [Concomitant]
     Indication: PULMONARY HYPERTENSION
  6. LASIX [Concomitant]
     Indication: CARDIAC FAILURE
  7. LETAIRIS [Suspect]
     Indication: PULMONARY VENO-OCCLUSIVE DISEASE
  8. LISINOPRIL [Concomitant]
     Indication: CARDIAC FAILURE
  9. ALDACTONE [Concomitant]
     Indication: CARDIAC FAILURE
  10. SIMVASTATIN [Concomitant]
     Indication: DYSLIPIDAEMIA
  11. OMEPRAZOLE [Concomitant]
     Indication: GASTROOESOPHAGEAL REFLUX DISEASE
  12. TRAZODONE HCL [Concomitant]
     Indication: SLEEP DISORDER

REACTIONS (2)
  - PULMONARY VENO-OCCLUSIVE DISEASE [None]
  - VENTRICULAR FIBRILLATION [None]
